FAERS Safety Report 23232388 (Version 1)
Quarter: 2023Q4

REPORT INFORMATION
  Report Type: Spontaneous
  Country: US (occurrence: US)
  Receive Date: 20231128
  Receipt Date: 20231128
  Transmission Date: 20240109
  Serious: No
  Sender: FDA-Public Use
  Company Number: US-SANOFI-01845386

PATIENT

DRUGS (1)
  1. DUPIXENT [Suspect]
     Active Substance: DUPILUMAB
     Indication: Dermatitis atopic
     Dosage: UNK

REACTIONS (3)
  - Ocular hyperaemia [Recovering/Resolving]
  - Conjunctivitis [Recovering/Resolving]
  - Keratitis [Recovering/Resolving]

NARRATIVE: CASE EVENT DATE: 20230101
